FAERS Safety Report 4523339-8 (Version None)
Quarter: 2004Q4

REPORT INFORMATION
  Report Type: 
  Country: None (occurrence: None)
  Receive Date: 20041209
  Receipt Date: 20041126
  Transmission Date: 20050328
  Serious: Yes (Other)
  Sender: FDA-Public Use
  Company Number: 2004099647

PATIENT
  Sex: Male
  Weight: 86.1834 kg

DRUGS (1)
  1. DILANTIN [Suspect]
     Indication: CONVULSION
     Dosage: 300 MG (100 MG, 3 IN 1 D), ORAL
     Route: 048
     Dates: start: 19840101

REACTIONS (8)
  - ARTHROPATHY [None]
  - BACK DISORDER [None]
  - CONVULSION [None]
  - FALL [None]
  - FATIGUE [None]
  - MEDICATION ERROR [None]
  - POLLAKIURIA [None]
  - TREATMENT NONCOMPLIANCE [None]
